FAERS Safety Report 8932317 (Version 2)
Quarter: 2013Q1

REPORT INFORMATION
  Report Type: Spontaneous
  Country: IT (occurrence: IT)
  Receive Date: 20121128
  Receipt Date: 20130313
  Transmission Date: 20140127
  Serious: Yes (Life-Threatening, Hospitalization)
  Sender: FDA-Public Use
  Company Number: IT-PFIZER INC-2012295992

PATIENT
  Age: 61 Year
  Sex: Female

DRUGS (5)
  1. SUTENT [Suspect]
     Indication: RENAL CELL CARCINOMA
     Dosage: 50 MG, 1X/DAY
     Route: 048
     Dates: start: 20120830, end: 20121107
  2. FRAGMIN [Concomitant]
     Dosage: 10000 IU, UNK
     Route: 058
     Dates: start: 20120830, end: 20121107
  3. SIMVASTATIN [Concomitant]
     Dosage: 20 MG, UNK
     Route: 048
     Dates: start: 20120830, end: 20121108
  4. LANSOPRAZOLE [Concomitant]
     Dosage: 30 MG, UNK
     Route: 048
     Dates: start: 20120830, end: 20121108
  5. AMLODIPINE [Concomitant]
     Dosage: 5 MG, UNK
     Dates: start: 20120830, end: 20121108

REACTIONS (3)
  - Cerebral haemorrhage [Recovered/Resolved]
  - Epilepsy [Recovered/Resolved]
  - Coma [Recovered/Resolved]
